FAERS Safety Report 4318722-X (Version None)
Quarter: 2004Q1

REPORT INFORMATION
  Report Type: 
  Country: None (occurrence: None)
  Receive Date: 20040315
  Receipt Date: 20040302
  Transmission Date: 20041129
  Serious: Yes (Hospitalization)
  Sender: FDA-Public Use
  Company Number: FR-JNJFOC-20040300868

PATIENT
  Age: 65 Year
  Sex: Male
  Weight: 51 kg

DRUGS (1)
  1. REMICADE [Suspect]
     Indication: RHEUMATOID ARTHRITIS
     Dosage: INTRAVENOUS
     Route: 042
     Dates: start: 20020610, end: 20020910

REACTIONS (7)
  - CERVICAL GLAND TUBERCULOSIS [None]
  - CHOLESTASIS [None]
  - LUNG NEOPLASM [None]
  - LYMPHADENOPATHY [None]
  - PULMONARY TUBERCULOSIS [None]
  - SPLENIC NEOPLASM MALIGNANCY UNSPECIFIED [None]
  - TUBERCULOSIS [None]
